FAERS Safety Report 5078643-4 (Version None)
Quarter: 2006Q3

REPORT INFORMATION
  Report Type: 
  Country: None (occurrence: None)
  Receive Date: 20060810
  Receipt Date: 20060810
  Transmission Date: 20061208
  Serious: Yes (Other)
  Sender: FDA-Public Use
  Company Number: None

PATIENT
  Sex: Female

DRUGS (4)
  1. CORICIDIN HBP COUGH + COLD (CHLORPHENIRAMINE MAL/DEX TABLETS [Suspect]
     Indication: DRUG USE FOR UNKNOWN INDICATION
     Dosage: ORAL
     Route: 048
     Dates: start: 20060618, end: 20060619
  2. LIPITOR [Concomitant]
  3. NEXIUM [Concomitant]
  4. POTASSIUM POLYCITRATE [Concomitant]

REACTIONS (3)
  - FATIGUE [None]
  - HYPOTENSION [None]
  - SYNCOPE [None]
